FAERS Safety Report 7674466-8 (Version None)
Quarter: 2011Q3

REPORT INFORMATION
  Report Type: 
  Country: None (occurrence: None)
  Receive Date: 20110810
  Receipt Date: 20110809
  Transmission Date: 20111222
  Serious: Yes (Other)
  Sender: FDA-Public Use
  Company Number: CN-ROCHE-739613

PATIENT

DRUGS (1)
  1. PEGINTERFERON ALFA-2A [Suspect]
     Indication: HEPATITIS B
     Dates: start: 20100601

REACTIONS (1)
  - DEATH NEONATAL [None]
